FAERS Safety Report 5324834-4 (Version None)
Quarter: 2007Q2

REPORT INFORMATION
  Report Type: 
  Country: None (occurrence: None)
  Receive Date: 20070510
  Receipt Date: 20070510
  Transmission Date: 20071010
  Serious: Yes (Other)
  Sender: FDA-Public Use
  Company Number: None

PATIENT
  Age: 37 Year
  Sex: Female
  Weight: 85.7298 kg

DRUGS (1)
  1. MIRENA [Suspect]
     Indication: CONTRACEPTION
     Dates: start: 20040101, end: 20070401

REACTIONS (7)
  - ABDOMINAL DISTENSION [None]
  - ACNE [None]
  - AMENORRHOEA [None]
  - DEPRESSION [None]
  - MOOD ALTERED [None]
  - SKIN HYPERPIGMENTATION [None]
  - WEIGHT INCREASED [None]
